FAERS Safety Report 6940828-7 (Version None)
Quarter: 2010Q3

REPORT INFORMATION
  Report Type: 
  Country: None (occurrence: None)
  Receive Date: 20100825
  Receipt Date: 20100820
  Transmission Date: 20110219
  Serious: Yes (Death, Hospitalization)
  Sender: FDA-Public Use
  Company Number: US-GILEAD-2010-0030073

PATIENT
  Sex: Female
  Weight: 119.86 kg

DRUGS (19)
  1. LETAIRIS [Suspect]
     Indication: PULMONARY ARTERIAL HYPERTENSION
     Route: 048
     Dates: start: 20100517, end: 20100609
  2. OXYGEN [Concomitant]
  3. REVATIO [Concomitant]
  4. DILTIAZEM [Concomitant]
  5. LISINOPRIL [Concomitant]
  6. LASIX [Concomitant]
  7. SPIRONOLACTONE [Concomitant]
  8. PREDNISONE [Concomitant]
  9. VENTOLIN [Concomitant]
  10. ASPIRIN [Concomitant]
  11. WARFARIN [Concomitant]
  12. KLOR-CON [Concomitant]
  13. SIMVASTATIN [Concomitant]
  14. CRESTOR [Concomitant]
  15. METFORMIN HCL [Concomitant]
  16. NOVOLOG [Concomitant]
  17. BACTRIM DS [Concomitant]
  18. TRAVATAN [Concomitant]
  19. ALEVE (CAPLET) [Concomitant]

REACTIONS (2)
  - DEATH [None]
  - RESPIRATORY DISORDER [None]
